FAERS Safety Report 11345938 (Version 1)
Quarter: 2015Q3

REPORT INFORMATION
  Report Type: Spontaneous
  Country: US (occurrence: US)
  Receive Date: 20150803
  Receipt Date: 20150803
  Transmission Date: 20151125
  Serious: No
  Sender: FDA-Public Use
  Company Number: US-ELI_LILLY_AND_COMPANY-US200909005019

PATIENT

DRUGS (1)
  1. STRATTERA [Suspect]
     Active Substance: ATOMOXETINE HYDROCHLORIDE
     Dosage: 90 MG, UNK

REACTIONS (8)
  - Violence-related symptom [Recovered/Resolved]
  - Fatigue [Unknown]
  - Therapeutic response decreased [Unknown]
  - Lethargy [Unknown]
  - Feeling abnormal [Unknown]
  - Hyperhidrosis [Recovered/Resolved]
  - Anger [Recovered/Resolved]
  - Insomnia [Unknown]
